FAERS Safety Report 6132236-6 (Version None)
Quarter: 2009Q1

REPORT INFORMATION
  Report Type: 
  Country: None (occurrence: None)
  Receive Date: 20090325
  Receipt Date: 20090313
  Transmission Date: 20090719
  Serious: Yes (Hospitalization)
  Sender: FDA-Public Use
  Company Number: BR-PFIZER INC-2009185677

PATIENT

DRUGS (11)
  1. MARAVIROC [Suspect]
     Indication: HIV INFECTION
     Dosage: 150 MG, 2X/DAY
     Route: 048
     Dates: start: 20080613
  2. DARUNAVIR [Concomitant]
     Dosage: UNK
     Route: 048
     Dates: start: 20080613
  3. RITONAVIR [Concomitant]
     Dosage: UNK
     Route: 048
     Dates: start: 20080613
  4. TENOFOVIR [Concomitant]
     Dosage: UNK
     Route: 048
     Dates: start: 20080613
  5. LAMIVUDINE [Concomitant]
     Dosage: UNK
     Route: 048
     Dates: start: 20080613
  6. ENFUVIRTIDE [Concomitant]
     Dosage: UNK
     Route: 058
     Dates: start: 20080613
  7. FLUCONAZOLE [Concomitant]
     Dosage: UNK
     Route: 048
     Dates: start: 19930101
  8. ATENOLOL [Concomitant]
     Dosage: UNK
     Route: 048
     Dates: start: 20080901
  9. HYDROCHLOROTHIAZIDE [Concomitant]
     Dosage: UNK
     Route: 048
     Dates: start: 20081101
  10. LOSARTAN [Concomitant]
     Dosage: UNK
     Route: 048
     Dates: start: 20081101
  11. CLONAZEPAM [Concomitant]
     Dosage: UNK
     Route: 048
     Dates: start: 20081101

REACTIONS (1)
  - PNEUMOCOCCAL BACTERAEMIA [None]
